FAERS Safety Report 11105523 (Version 2)
Quarter: 2015Q2

REPORT INFORMATION
  Report Type: Spontaneous
  Country: GB (occurrence: GB)
  Receive Date: 20150512
  Receipt Date: 20150625
  Transmission Date: 20150821
  Serious: Yes (Death, Hospitalization)
  Sender: FDA-Public Use
  Company Number: GB-ROCHE-1575426

PATIENT
  Age: 57 Year
  Sex: Female
  Weight: 76 kg

DRUGS (21)
  1. FLUTICASONE PROPIONATE. [Concomitant]
     Active Substance: FLUTICASONE PROPIONATE
     Route: 065
  2. AMITRIPTYLINE [Concomitant]
     Active Substance: AMITRIPTYLINE
     Indication: RHEUMATOID ARTHRITIS
     Route: 065
  3. BENDROFLUMETHIAZIDE [Concomitant]
     Active Substance: BENDROFLUMETHIAZIDE
     Route: 065
  4. NABUMETONE. [Concomitant]
     Active Substance: NABUMETONE
     Route: 065
  5. OMEPRAZOLE. [Concomitant]
     Active Substance: OMEPRAZOLE
     Route: 065
  6. ROPINIROLE. [Concomitant]
     Active Substance: ROPINIROLE
     Route: 065
  7. INSULIN [Concomitant]
     Active Substance: INSULIN NOS
     Route: 065
  8. RAMIPRIL. [Concomitant]
     Active Substance: RAMIPRIL
     Route: 065
  9. SIMVASTATIN. [Concomitant]
     Active Substance: SIMVASTATIN
     Route: 065
  10. RITUXIMAB [Suspect]
     Active Substance: RITUXIMAB
     Indication: RHEUMATOID ARTHRITIS
     Route: 042
     Dates: start: 20140623, end: 20140707
  11. ASPIRIN. [Concomitant]
     Active Substance: ASPIRIN
     Route: 065
  12. CETIRIZINE [Concomitant]
     Active Substance: CETIRIZINE HYDROCHLORIDE
     Route: 065
  13. ROSUVASTATIN [Concomitant]
     Active Substance: ROSUVASTATIN
     Route: 065
  14. DUROGESIC D TRANS [Concomitant]
     Active Substance: FENTANYL
     Route: 065
  15. SALAMOL [Concomitant]
     Active Substance: ALBUTEROL
     Route: 055
  16. HYPROMELLOSE [Concomitant]
     Active Substance: HYPROMELLOSES
     Route: 065
  17. PARACETAMOL [Concomitant]
     Active Substance: ACETAMINOPHEN
     Route: 065
  18. AMLODIPINE [Concomitant]
     Active Substance: AMLODIPINE BESYLATE
     Route: 065
  19. METFORMIN [Concomitant]
     Active Substance: METFORMIN HYDROCHLORIDE
     Route: 065
  20. OXYBUTYNIN [Concomitant]
     Active Substance: OXYBUTYNIN
     Route: 065
  21. FENTANYL. [Concomitant]
     Active Substance: FENTANYL
     Route: 065

REACTIONS (12)
  - Abnormal loss of weight [Unknown]
  - Multi-organ failure [Not Recovered/Not Resolved]
  - Circulatory collapse [Not Recovered/Not Resolved]
  - Cough [Recovered/Resolved]
  - Poor quality sleep [Unknown]
  - Pneumonia [Fatal]
  - Lethargy [Recovered/Resolved]
  - Diabetic ketoacidosis [Not Recovered/Not Resolved]
  - Pain [Unknown]
  - Syncope [Not Recovered/Not Resolved]
  - Influenza [Fatal]
  - Septic shock [Not Recovered/Not Resolved]

NARRATIVE: CASE EVENT DATE: 20150215
